FAERS Safety Report 6237493-3 (Version None)
Quarter: 2009Q2

REPORT INFORMATION
  Report Type: 
  Country: None (occurrence: None)
  Receive Date: 20090619
  Receipt Date: 20081215
  Transmission Date: 20091009
  Serious: No
  Sender: FDA-Public Use
  Company Number: US-AMGEN-KDL323985

PATIENT
  Sex: Female

DRUGS (7)
  1. ARANESP [Suspect]
     Indication: ANAEMIA OF MALIGNANT DISEASE
     Dates: start: 20021001
  2. AVASTIN [Concomitant]
     Dates: start: 20081103
  3. TOPOTECAN [Concomitant]
     Dates: start: 20081103
  4. FEMARA [Concomitant]
  5. SYNTHROID [Concomitant]
  6. FRAGMIN [Concomitant]
  7. NEXIUM [Concomitant]

REACTIONS (1)
  - RED BLOOD CELL COUNT DECREASED [None]
